FAERS Safety Report 22753791 (Version 4)
Quarter: 2024Q2

REPORT INFORMATION
  Report Type: Report from Study
  Country: US (occurrence: US)
  Receive Date: 20230726
  Receipt Date: 20240607
  Transmission Date: 20240715
  Serious: Yes (Hospitalization, Other)
  Sender: FDA-Public Use
  Company Number: US-ABBVIE-5341542

PATIENT
  Sex: Male

DRUGS (5)
  1. IMBRUVICA [Suspect]
     Active Substance: IBRUTINIB
     Indication: Chronic lymphocytic leukaemia
     Route: 048
     Dates: end: 202308
  2. IMBRUVICA [Suspect]
     Active Substance: IBRUTINIB
     Indication: Chronic lymphocytic leukaemia
     Route: 048
  3. IMBRUVICA [Suspect]
     Active Substance: IBRUTINIB
     Indication: Chronic lymphocytic leukaemia
     Route: 048
  4. LEVETIRACETAM [Concomitant]
     Active Substance: LEVETIRACETAM
     Indication: Product used for unknown indication
  5. CALQUENCE [Concomitant]
     Active Substance: ACALABRUTINIB
     Indication: Product used for unknown indication

REACTIONS (10)
  - Subdural haematoma [Recovered/Resolved]
  - Acne [Recovered/Resolved]
  - Subdural haematoma [Recovered/Resolved]
  - Hypertension [Unknown]
  - Skin ulcer [Unknown]
  - Cerebrovascular accident [Recovering/Resolving]
  - Cerebral haemorrhage [Recovering/Resolving]
  - Cardiac disorder [Unknown]
  - Haemoglobin abnormal [Unknown]
  - Chronic obstructive pulmonary disease [Unknown]

NARRATIVE: CASE EVENT DATE: 20230101
